FAERS Safety Report 8211150-6 (Version None)
Quarter: 2012Q1

REPORT INFORMATION
  Report Type: 
  Country: None (occurrence: None)
  Receive Date: 20120315
  Receipt Date: 20120307
  Transmission Date: 20120608
  Serious: Yes (Other)
  Sender: FDA-Public Use
  Company Number: CA-BAYER-2012-022404

PATIENT
  Age: 21 Year
  Sex: Female
  Weight: 52 kg

DRUGS (1)
  1. YASMIN [Suspect]
     Dosage: 1 DF, QD
     Route: 048

REACTIONS (2)
  - OEDEMA GENITAL [None]
  - FUNGAL INFECTION [None]
